FAERS Safety Report 6138401-6 (Version None)
Quarter: 2009Q1

REPORT INFORMATION
  Report Type: 
  Country: None (occurrence: None)
  Receive Date: 20090327
  Receipt Date: 20090327
  Transmission Date: 20090719
  Serious: Yes (Hospitalization)
  Sender: FDA-Public Use
  Company Number: None

PATIENT
  Sex: Female
  Weight: 67 kg

DRUGS (1)
  1. RITUXIMAB(MOAB C2B8 ANTI CD20, CHIMERIC) [Suspect]
     Dosage: 640 MG

REACTIONS (2)
  - HYPOXIA [None]
  - INFUSION RELATED REACTION [None]
